FAERS Safety Report 25894670 (Version 2)
Quarter: 2025Q4

REPORT INFORMATION
  Report Type: Report from Study
  Country: US (occurrence: US)
  Receive Date: 20251008
  Receipt Date: 20251024
  Transmission Date: 20260118
  Serious: Yes (Other)
  Sender: TEVA
  Company Number: US-TEVA-VS-3378029

PATIENT

DRUGS (3)
  1. FLUDARABINE [Suspect]
     Active Substance: FLUDARABINE PHOSPHATE
     Indication: Chemotherapy
     Dosage: ON DAYS 1-3 OF EACH COURSE; TREATMENT WAS REPEATED EVERY 4 WEEKS?FOR A TOTAL OF 6 COURSES.
     Route: 065
  2. RITUXIMAB [Suspect]
     Active Substance: RITUXIMAB
     Indication: Chemotherapy
     Dosage: ON DAY 1; TREATMENT WAS REPEATED EVERY 4 WEEKS?FOR A TOTAL OF 6 COURSES.
     Route: 065
  3. CYCLOPHOSPHAMIDE [Suspect]
     Active Substance: CYCLOPHOSPHAMIDE
     Indication: Chemotherapy
     Dosage: ON DAYS 1-3 OF EACH COURSE; TREATMENT WAS REPEATED EVERY 4 WEEKS?FOR A TOTAL OF 6 COURSES.
     Route: 065

REACTIONS (1)
  - Chronic lymphocytic leukaemia [Unknown]
